FAERS Safety Report 8856694 (Version 2)
Quarter: 2012Q4

REPORT INFORMATION
  Report Type: Spontaneous
  Country: None (occurrence: None)
  Receive Date: 20121019
  Receipt Date: 20121024
  Transmission Date: 20130627
  Serious: Yes (Hospitalization, Other)
  Sender: FDA-Public Use
  Company Number: AUR-APL-2012-04453

PATIENT
  Age: 68 Year
  Sex: Male

DRUGS (2)
  1. METFORMIN (METFORMIN) [Suspect]
     Indication: TYPE 2 DIABETES MELLITUS
  2. FUROSEMIDE (FUROSEMIDE) [Concomitant]

REACTIONS (6)
  - Gastroenteritis salmonella [None]
  - Renal failure [None]
  - Lactic acidosis [None]
  - Haemodialysis [None]
  - Nausea [None]
  - General physical health deterioration [None]
